FAERS Safety Report 25208666 (Version 3)
Quarter: 2025Q4

REPORT INFORMATION
  Report Type: Report from Study
  Country: RS (occurrence: RS)
  Receive Date: 20250417
  Receipt Date: 20251120
  Transmission Date: 20260117
  Serious: Yes (Hospitalization, Other)
  Sender: BOEHRINGER INGELHEIM
  Company Number: RS-BoehringerIngelheim-2025-BI-021678

PATIENT
  Age: 70 Year
  Sex: Male
  Weight: 78 kg

DRUGS (8)
  1. JARDIANCE [Suspect]
     Active Substance: EMPAGLIFLOZIN
     Indication: Diabetes mellitus
     Dates: end: 202501
  2. JARDIANCE [Suspect]
     Active Substance: EMPAGLIFLOZIN
     Dates: start: 202503, end: 20250408
  3. JARDIANCE [Suspect]
     Active Substance: EMPAGLIFLOZIN
  4. Glukofage [Concomitant]
     Indication: Product used for unknown indication
  5. GLICLAZIDE [Concomitant]
     Active Substance: GLICLAZIDE
     Indication: Product used for unknown indication
  6. Atakor [Concomitant]
     Indication: Product used for unknown indication
  7. RAMIPRIL [Concomitant]
     Active Substance: RAMIPRIL
     Indication: Product used for unknown indication
  8. Konkor [Concomitant]
     Indication: Product used for unknown indication

REACTIONS (15)
  - Renal cell carcinoma [Unknown]
  - Ketoacidosis [Recovered/Resolved]
  - Respiratory acidosis [Recovered/Resolved]
  - Tachypnoea [Recovered/Resolved]
  - Blood pressure increased [Recovered/Resolved]
  - Prostate cancer [Unknown]
  - Pulmonary embolism [Recovered/Resolved]
  - Glycosylated haemoglobin increased [Unknown]
  - Blood urea increased [Unknown]
  - Blood creatinine increased [Unknown]
  - Glomerular filtration rate increased [Unknown]
  - Glomerular filtration rate decreased [Unknown]
  - Blood creatinine abnormal [Unknown]
  - Urinary tract infection [Recovered/Resolved]
  - Blood urea abnormal [Unknown]

NARRATIVE: CASE EVENT DATE: 20240101
